FAERS Safety Report 23685924 (Version 2)
Quarter: 2024Q2

REPORT INFORMATION
  Report Type: Report from Study
  Country: US (occurrence: US)
  Receive Date: 20240329
  Receipt Date: 20240422
  Transmission Date: 20240715
  Serious: Yes (Death, Hospitalization, Other)
  Sender: FDA-Public Use
  Company Number: US-TAKEDA-2022TUS048738

PATIENT
  Age: 72 Year
  Sex: Male
  Weight: 57 kg

DRUGS (32)
  1. .ALPHA.1-PROTEINASE INHIBITOR HUMAN [Suspect]
     Active Substance: .ALPHA.1-PROTEINASE INHIBITOR HUMAN
     Indication: Chronic obstructive pulmonary disease
     Dosage: 60 MILLIGRAM/KILOGRAM, 1/WEEK
     Route: 042
     Dates: start: 20211208
  2. .ALPHA.1-PROTEINASE INHIBITOR HUMAN [Suspect]
     Active Substance: .ALPHA.1-PROTEINASE INHIBITOR HUMAN
     Indication: Chronic obstructive pulmonary disease
     Dosage: 60 MILLIGRAM/KILOGRAM, 1/WEEK
     Route: 042
     Dates: start: 20211208
  3. .ALPHA.1-PROTEINASE INHIBITOR HUMAN [Suspect]
     Active Substance: .ALPHA.1-PROTEINASE INHIBITOR HUMAN
     Indication: Alpha-1 antitrypsin deficiency
  4. .ALPHA.1-PROTEINASE INHIBITOR HUMAN [Suspect]
     Active Substance: .ALPHA.1-PROTEINASE INHIBITOR HUMAN
     Indication: Alpha-1 antitrypsin deficiency
  5. DIPHENHYDRAMINE [Concomitant]
     Active Substance: DIPHENHYDRAMINE
     Dosage: UNK
  6. PAIN EASE [Concomitant]
     Active Substance: CAMPHOR OIL\MENTHOL\METHYL SALICYLATE
     Dosage: UNK
     Route: 065
  7. HEPARIN [Concomitant]
     Active Substance: HEPARIN SODIUM
     Dosage: UNK
  8. CLOPIDOGREL [Concomitant]
     Active Substance: CLOPIDOGREL BISULFATE
     Dosage: UNK
  9. ALBUTEROL SULFATE [Concomitant]
     Active Substance: ALBUTEROL SULFATE
     Dosage: UNK
  10. TRELEGY ELLIPTA [Concomitant]
     Active Substance: FLUTICASONE FUROATE\UMECLIDINIUM BROMIDE\VILANTEROL TRIFENATATE
     Dosage: UNK
     Route: 065
  11. CALCIUM\CHOLECALCIFEROL [Concomitant]
     Active Substance: CALCIUM\CHOLECALCIFEROL
     Dosage: UNK
  12. VIRTUSSIN AC [Concomitant]
     Active Substance: CODEINE PHOSPHATE\GUAIFENESIN
     Dosage: UNK
  13. DALIRESP [Concomitant]
     Active Substance: ROFLUMILAST
     Dosage: UNK
  14. EPINEPHRINE [Concomitant]
     Active Substance: EPINEPHRINE
     Dosage: UNK
  15. SODIUM CHLORIDE [Concomitant]
     Active Substance: SODIUM CHLORIDE
     Dosage: UNK
  16. FLUTICASONE PROPIONATE [Concomitant]
     Active Substance: FLUTICASONE PROPIONATE
     Dosage: UNK
  17. IBUPROFEN [Concomitant]
     Active Substance: IBUPROFEN
     Dosage: UNK
  18. AMLODIPINE BESYLATE [Concomitant]
     Active Substance: AMLODIPINE BESYLATE
     Dosage: UNK
  19. PREDNISONE [Concomitant]
     Active Substance: PREDNISONE
     Dosage: UNK
  20. NITROGLYCERIN TE [Concomitant]
     Dosage: UNK
  21. OXYGEN [Concomitant]
     Active Substance: OXYGEN
     Dosage: UNK
  22. SODIUM CHLORIDE [Concomitant]
     Active Substance: SODIUM CHLORIDE
     Dosage: UNK
  23. VITAMIN C [Concomitant]
     Active Substance: ASCORBIC ACID
     Dosage: UNK
  24. ASPIRIN [Concomitant]
     Active Substance: ASPIRIN
     Dosage: UNK
  25. LISINOPRIL [Concomitant]
     Active Substance: LISINOPRIL
     Dosage: UNK
  26. Lmx [Concomitant]
     Dosage: UNK
  27. PANTOPRAZOLE SODIUM [Concomitant]
     Active Substance: PANTOPRAZOLE SODIUM
     Dosage: UNK
  28. MIRALAX [Concomitant]
     Active Substance: POLYETHYLENE GLYCOL 3350
     Dosage: UNK
  29. PRAVASTATIN SODIUM [Concomitant]
     Active Substance: PRAVASTATIN SODIUM
     Dosage: UNK
  30. ADVAIR HFA [Concomitant]
     Active Substance: FLUTICASONE PROPIONATE\SALMETEROL XINAFOATE
  31. SPIRIVA [Concomitant]
     Active Substance: TIOTROPIUM BROMIDE MONOHYDRATE
     Route: 065
  32. ALBUTEROL SULFATE [Concomitant]
     Active Substance: ALBUTEROL SULFATE
     Dosage: UNK
     Route: 065

REACTIONS (7)
  - Death [Fatal]
  - Dyspnoea [Unknown]
  - COVID-19 [Unknown]
  - Respiratory tract infection [Unknown]
  - Infusion site haemorrhage [Unknown]
  - Weight decreased [Unknown]
  - Product dose omission issue [Unknown]

NARRATIVE: CASE EVENT DATE: 20220627
